FAERS Safety Report 5631571-5 (Version None)
Quarter: 2008Q1

REPORT INFORMATION
  Report Type: 
  Country: None (occurrence: None)
  Receive Date: 20080212
  Receipt Date: 20080207
  Transmission Date: 20080703
  Serious: Yes (Hospitalization, Other)
  Sender: FDA-Public Use
  Company Number: 023562

PATIENT
  Age: 78 Year
  Sex: Male
  Weight: 70.3 kg

DRUGS (9)
  1. HYDROXYZINE HCL [Suspect]
     Indication: PRURITUS
     Dosage: 25 MG, TID, ORAL
     Route: 048
     Dates: start: 20080130, end: 20080131
  2. NEULASTA [Concomitant]
  3. PLAVIX [Concomitant]
  4. COREG [Concomitant]
  5. SYNTHROID [Concomitant]
  6. FELODIPINE [Concomitant]
  7. SIMVASTATIN [Concomitant]
  8. OMEPRAZOLE [Concomitant]
  9. LISINOPRIL [Concomitant]

REACTIONS (9)
  - AMNESIA [None]
  - ANXIETY [None]
  - APHASIA [None]
  - BRAIN SCAN ABNORMAL [None]
  - CONFUSIONAL STATE [None]
  - DISORIENTATION [None]
  - TREMOR [None]
  - URINARY INCONTINENCE [None]
  - VISUAL DISTURBANCE [None]
